FAERS Safety Report 7479559-6 (Version None)
Quarter: 2011Q2

REPORT INFORMATION
  Report Type: 
  Country: None (occurrence: None)
  Receive Date: 20110513
  Receipt Date: 20110511
  Transmission Date: 20111010
  Serious: Yes (Life-Threatening, Hospitalization, Other)
  Sender: FDA-Public Use
  Company Number: JP-PFIZER INC-2011083945

PATIENT
  Age: 75 Year
  Sex: Female
  Weight: 76 kg

DRUGS (11)
  1. AMARYL [Concomitant]
     Indication: DIABETES MELLITUS
     Dosage: 1 MG, 1X/DAY
     Route: 048
     Dates: start: 20100327, end: 20100816
  2. LYRICA [Suspect]
     Indication: PAIN
     Dosage: 75 MG, 2X/DAY
     Route: 048
     Dates: start: 20100715, end: 20100729
  3. MUCOSTA [Concomitant]
     Indication: GASTRITIS
     Dosage: 100 MG, 3X/DAY
     Route: 048
     Dates: start: 20100327, end: 20100816
  4. TAKEPRON [Concomitant]
     Indication: REFLUX OESOPHAGITIS
     Dosage: 15 MG, 1X/DAY
     Route: 048
     Dates: start: 20100423, end: 20100816
  5. ETODOLAC [Suspect]
     Indication: PAIN
     Dosage: 200 MG, 2X/DAY
     Route: 048
     Dates: start: 20100729, end: 20100816
  6. NORVASC [Concomitant]
     Indication: HYPERTENSION
     Dosage: 5 MG, 1X/DAY
     Route: 048
     Dates: start: 20100327, end: 20100816
  7. MEILAX [Concomitant]
     Indication: DEPRESSION
  8. KAKKON-TO [Concomitant]
     Indication: MUSCULOSKELETAL STIFFNESS
     Dosage: UNK
     Route: 048
     Dates: start: 20100729, end: 20100816
  9. MEILAX [Concomitant]
     Indication: ANXIETY
     Dosage: UNK
     Route: 048
     Dates: start: 20100327, end: 20100816
  10. ROHYPNOL [Concomitant]
     Indication: INSOMNIA
     Dosage: 1 MG, 1X/DAY
     Route: 048
     Dates: start: 20100327, end: 20100816
  11. MEILAX [Concomitant]
     Indication: INSOMNIA

REACTIONS (3)
  - LIVER FUNCTION TEST ABNORMAL [None]
  - RHABDOMYOLYSIS [None]
  - CHEST PAIN [None]
